FAERS Safety Report 8993352 (Version 2)
Quarter: 2013Q1

REPORT INFORMATION
  Report Type: Report from Study
  Country: JP (occurrence: JP)
  Receive Date: 20130102
  Receipt Date: 20130226
  Transmission Date: 20140127
  Serious: Yes (Other)
  Sender: FDA-Public Use
  Company Number: JP-OTSUKA-JP-2012-17274

PATIENT
  Age: 72 Year
  Sex: Male
  Weight: 54 kg

DRUGS (12)
  1. SAMSCA [Suspect]
     Indication: FLUID RETENTION
     Dosage: 15 MG MILLIGRAM(S), QAM
     Route: 048
     Dates: start: 20120511, end: 20120527
  2. SAMSCA [Suspect]
     Dosage: 7.5 MG MILLIGRAM(S), QAM
     Route: 048
     Dates: start: 20120528, end: 20120603
  3. LASIX [Suspect]
     Indication: CARDIAC FAILURE
     Dosage: 40 MG MILLIGRAM(S), DAILY DOSE
     Route: 048
     Dates: start: 20120416
  4. LASIX [Suspect]
     Indication: CARDIAC FAILURE
     Dosage: 20 MG MILLIGRAM(S), DAILY DOSE
     Route: 042
     Dates: start: 20120522, end: 20120525
  5. LUPRAC [Suspect]
     Indication: CARDIAC FAILURE
     Dosage: 8 MG MILLIGRAM(S), DAILY DOSE
     Route: 048
     Dates: start: 20120526
  6. TIZANIN [Concomitant]
     Dosage: 3 MG MILLIGRAM(S), DAILY DOSE
     Route: 048
  7. DANTRIUM [Concomitant]
     Dosage: 75 MG MILLIGRAM(S), DAILY DOSE
     Route: 048
  8. DEPAKENE [Concomitant]
     Dosage: 16 ML MILLILITRE(S), DAILY DOSE
     Route: 048
  9. GASTER [Concomitant]
     Dosage: 40 MG MILLIGRAM(S), DAILY DOSE
     Route: 048
  10. ALBUMINAR [Concomitant]
     Indication: CARDIAC FAILURE
     Dosage: 100 ML MILLILITRE(S), DAILY DOSE
     Route: 042
     Dates: start: 20120511, end: 20120511
  11. ALBUMINAR [Concomitant]
     Dosage: 100 ML MILLILITRE(S), DAILY DOSE
     Route: 042
     Dates: start: 20120522, end: 20120525
  12. KCL CORRECTIVE [Concomitant]
     Indication: PROPHYLAXIS
     Dosage: 40 ML MILLILITRE(S), DAILY DOSE
     Route: 041
     Dates: start: 20120524, end: 20120525

REACTIONS (2)
  - Cholecystitis [Recovering/Resolving]
  - Blood sodium increased [Recovering/Resolving]
